FAERS Safety Report 5017192-6 (Version None)
Quarter: 2006Q2

REPORT INFORMATION
  Report Type: 
  Country: None (occurrence: None)
  Receive Date: 20060602
  Receipt Date: 20051116
  Transmission Date: 20061013
  Serious: Yes (Congenital Anomaly)
  Sender: FDA-Public Use
  Company Number: GB-ABBOTT-05P-167-0317416-00

PATIENT
  Sex: Male
  Weight: 6.7 kg

DRUGS (1)
  1. EPILIM TABLETS [Suspect]
     Indication: DRUG EXPOSURE DURING PREGNANCY

REACTIONS (12)
  - ANOMALY OF EXTERNAL EAR CONGENITAL [None]
  - ANTISOCIAL BEHAVIOUR [None]
  - ARTHRALGIA [None]
  - ATTENTION DEFICIT/HYPERACTIVITY DISORDER [None]
  - DISTURBANCE IN SOCIAL BEHAVIOUR [None]
  - ECZEMA [None]
  - FACIAL DYSMORPHISM [None]
  - FEELING ABNORMAL [None]
  - FOETAL VALPROATE SYNDROME [None]
  - HYPOSPADIAS [None]
  - POOR QUALITY SLEEP [None]
  - SLEEP WALKING [None]
